FAERS Safety Report 20111002 (Version 5)
Quarter: 2022Q1

REPORT INFORMATION
  Report Type: Report from Study
  Country: US (occurrence: US)
  Receive Date: 20211125
  Receipt Date: 20220214
  Transmission Date: 20220423
  Serious: No
  Sender: FDA-Public Use
  Company Number: US-NOVARTISTESTPH-NVSC2021US269515

PATIENT
  Sex: Female

DRUGS (2)
  1. ENTRESTO [Suspect]
     Active Substance: SACUBITRIL\VALSARTAN
     Indication: Product used for unknown indication
     Dosage: 1 DOSAGE FORM (97/103 MG)
     Route: 048
     Dates: start: 20210920
  2. BRILINTA [Concomitant]
     Active Substance: TICAGRELOR
     Indication: Product used for unknown indication
     Dosage: UNK
     Route: 065

REACTIONS (9)
  - Back pain [Unknown]
  - Dyspnoea [Unknown]
  - Glucose tolerance impaired [Unknown]
  - Dizziness [Unknown]
  - Cough [Unknown]
  - Hypersensitivity [Unknown]
  - Upper-airway cough syndrome [Recovering/Resolving]
  - Hypotension [Recovering/Resolving]
  - Product dose omission issue [Recovered/Resolved]
